FAERS Safety Report 15466774 (Version 2)
Quarter: 2018Q4

REPORT INFORMATION
  Report Type: Report from Study
  Country: None (occurrence: NL)
  Receive Date: 20181005
  Receipt Date: 20181109
  Transmission Date: 20190204
  Serious: Yes (Death)
  Sender: FDA-Public Use
  Company Number: NL-ABBVIE-18S-114-2509477-00

PATIENT
  Sex: Male

DRUGS (1)
  1. DUODOPA [Suspect]
     Active Substance: CARBIDOPA\LEVODOPA
     Indication: PARKINSON^S DISEASE
     Dosage: MD WAS LOWERED FROM 10 ML. TO 9 ML. AND THE CD FROM 3.5 ML TO 3.2 ML.
     Route: 050
     Dates: start: 20131220

REACTIONS (2)
  - Fracture [Fatal]
  - Hip fracture [Not Recovered/Not Resolved]
